FAERS Safety Report 9380071 (Version 1)
Quarter: 2013Q3

REPORT INFORMATION
  Report Type: Spontaneous
  Country: US (occurrence: None)
  Receive Date: 20130701
  Receipt Date: 20130701
  Transmission Date: 20140515
  Serious: Yes (Other)
  Sender: FDA-Public Use
  Company Number: None

PATIENT
  Age: 76 Year
  Sex: Female

DRUGS (10)
  1. FORTEO [Suspect]
     Indication: OSTEOPOROSIS
     Dosage: SQ
     Dates: start: 20120920
  2. ADVAIR [Concomitant]
  3. GUAIFENESIN [Concomitant]
  4. LEVOTHYROXINE [Concomitant]
  5. METOPROLOL [Concomitant]
  6. NASONEX [Concomitant]
  7. SIMVASTATIN [Concomitant]
  8. SINGULAIR [Concomitant]
  9. MULTIVITAMIN [Concomitant]
  10. IRBESARTAN [Concomitant]

REACTIONS (1)
  - Blood calcium increased [None]
